FAERS Safety Report 12851441 (Version 4)
Quarter: 2016Q4

REPORT INFORMATION
  Report Type: Spontaneous
  Country: DE (occurrence: DE)
  Receive Date: 20161016
  Receipt Date: 20161222
  Transmission Date: 20170207
  Serious: Yes (Hospitalization)
  Sender: FDA-Public Use
  Company Number: DE-AMGEN-DEUSP2016141680

PATIENT
  Sex: Female

DRUGS (7)
  1. DOXORUBICINE [Suspect]
     Active Substance: DOXORUBICIN
     Indication: B-CELL LYMPHOMA
     Dosage: UNK, CYCLICAL, MOST RECENT CYCLE (CYCLE 4): 27/SEP/2016 (1 X PER CYCLE)
     Route: 042
     Dates: start: 20160817
  2. PEGFILGRASTIM [Suspect]
     Active Substance: PEGFILGRASTIM
     Indication: B-CELL LYMPHOMA
     Dosage: 6 MG, CYCLICAL (MOST RECENT CYCLE (CYCLE 4): 27/SEP/2016 (ONCE PER CYCLE)
     Route: 058
     Dates: start: 20160819
  3. PREDNISOLONE. [Suspect]
     Active Substance: PREDNISOLONE
     Indication: B-CELL LYMPHOMA
     Dosage: UNK, CYCLICAL, DAY 1-6 MOST RECENT CYCLE (CYCLE 4): 27/SEP/2016 (DAY 1-5)
     Route: 048
     Dates: start: 20160816
  4. RITUXIMAB [Suspect]
     Active Substance: RITUXIMAB
     Indication: B-CELL LYMPHOMA
     Dosage: UNK, MOST RECENT CYCLE (CYCLE 4): 27/SEP/2016 (1 X PER CYCLE)
     Route: 042
     Dates: start: 20160816
  5. VINCRISTINE [Suspect]
     Active Substance: VINCRISTINE
     Indication: B-CELL LYMPHOMA
     Dosage: UNK, CYCLICAL, MOST RECENT CYCLE (CYCLE 4): 27/SEP/2016 (1 X CYCLE)
     Route: 042
     Dates: start: 20160817
  6. CYCLOPHOSPHAMIDE. [Suspect]
     Active Substance: CYCLOPHOSPHAMIDE
     Indication: B-CELL LYMPHOMA
     Dosage: UNK, CYCLICAL, (CYCLE 4) 1 X PER CYCLE)
     Route: 042
     Dates: start: 20160817
  7. BISOPROLOL [Concomitant]
     Active Substance: BISOPROLOL
     Indication: ARRHYTHMIA
     Dosage: UNK
     Dates: start: 20161002

REACTIONS (2)
  - Chest discomfort [Unknown]
  - Pulmonary embolism [Recovered/Resolved]

NARRATIVE: CASE EVENT DATE: 20161002
